FAERS Safety Report 10953009 (Version 1)
Quarter: 2015Q1

REPORT INFORMATION
  Report Type: Spontaneous
  Country: BR (occurrence: BR)
  Receive Date: 20150325
  Receipt Date: 20150325
  Transmission Date: 20150721
  Serious: Yes (Hospitalization)
  Sender: FDA-Public Use
  Company Number: BR-PFIZER INC-2015098504

PATIENT
  Age: 96 Year
  Sex: Female
  Weight: 60 kg

DRUGS (4)
  1. CILOSTAZOL. [Concomitant]
     Active Substance: CILOSTAZOL
     Dosage: UNK
     Dates: start: 2007
  2. TIMOLOL [Concomitant]
     Active Substance: TIMOLOL
     Dosage: 2 GTT (1 DROP IN EACH EYE), 2X/DAY
     Dates: start: 2007, end: 2012
  3. XALATAN [Suspect]
     Active Substance: LATANOPROST
     Indication: GLAUCOMA
     Dosage: 3 ?G (1 DROP IN EACH EYE), 1X/DAY (AT NIGHT)
     Route: 047
     Dates: start: 2007
  4. BRIMONIDINE [Concomitant]
     Active Substance: BRIMONIDINE\BRIMONIDINE TARTRATE
     Dosage: 2 GTT (1 DROP IN EACH EYE), 3X/DAY
     Dates: start: 2007, end: 2014

REACTIONS (4)
  - Pneumonia [Not Recovered/Not Resolved]
  - Seizure [Not Recovered/Not Resolved]
  - Urinary tract infection [Not Recovered/Not Resolved]
  - Cardiac disorder [Not Recovered/Not Resolved]

NARRATIVE: CASE EVENT DATE: 2011
